FAERS Safety Report 7028020-1 (Version None)
Quarter: 2010Q3

REPORT INFORMATION
  Report Type: 
  Country: None (occurrence: None)
  Receive Date: 20100902
  Receipt Date: 20100825
  Transmission Date: 20110219
  Serious: Yes (Hospitalization)
  Sender: FDA-Public Use
  Company Number: AECAN201000306

PATIENT
  Age: 66 Year
  Sex: Female
  Weight: 56.6996 kg

DRUGS (2)
  1. GAMUNEX [Suspect]
     Indication: LYMPHOMA
     Dosage: 1X; IV
     Route: 042
     Dates: start: 20100823, end: 20100823
  2. GAMUNEX [Suspect]
     Indication: PNEUMONIA
     Dosage: 1X; IV
     Route: 042
     Dates: start: 20100823, end: 20100823

REACTIONS (8)
  - ANXIETY [None]
  - CYANOSIS [None]
  - DYSPNOEA [None]
  - INFUSION RELATED REACTION [None]
  - PYREXIA [None]
  - RALES [None]
  - TACHYPNOEA [None]
  - WHEEZING [None]
